FAERS Safety Report 11912107 (Version 1)
Quarter: 2016Q1

REPORT INFORMATION
  Report Type: Spontaneous
  Country: TH (occurrence: TH)
  Receive Date: 20160112
  Receipt Date: 20160112
  Transmission Date: 20160526
  Serious: Yes (Other)
  Sender: FDA-Public Use
  Company Number: TH-MYLANLABS-2016M1000910

PATIENT

DRUGS (3)
  1. CEFTRIAXONE. [Concomitant]
     Active Substance: CEFTRIAXONE
     Indication: RHODOCOCCUS INFECTION
     Route: 042
  2. VANCOMYCIN [Suspect]
     Active Substance: VANCOMYCIN
     Indication: RHODOCOCCUS INFECTION
     Route: 042
  3. RIFAMPICIN [Suspect]
     Active Substance: RIFAMPIN
     Indication: RHODOCOCCUS INFECTION
     Route: 048

REACTIONS (2)
  - Drug hypersensitivity [Recovering/Resolving]
  - Transaminases increased [Recovering/Resolving]
